FAERS Safety Report 4925157-5 (Version None)
Quarter: 2006Q1

REPORT INFORMATION
  Report Type: 
  Country: None (occurrence: None)
  Receive Date: 20060228
  Receipt Date: 20051212
  Transmission Date: 20060701
  Serious: No
  Sender: FDA-Public Use
  Company Number: US-GLAXOSMITHKLINE-A0585742A

PATIENT
  Age: 63 Year
  Sex: Male
  Weight: 93.6 kg

DRUGS (2)
  1. AVODART [Suspect]
     Indication: BENIGN PROSTATIC HYPERPLASIA
     Dosage: .5MG PER DAY
     Route: 048
     Dates: start: 20050523, end: 20050601
  2. ELAVIL [Concomitant]

REACTIONS (5)
  - DRUG INEFFECTIVE [None]
  - EMOTIONAL DISORDER [None]
  - LIBIDO DECREASED [None]
  - MALAISE [None]
  - URINARY RETENTION [None]
